FAERS Safety Report 20303092 (Version 3)
Quarter: 2023Q2

REPORT INFORMATION
  Report Type: Spontaneous
  Country: US (occurrence: US)
  Receive Date: 20220106
  Receipt Date: 20230614
  Transmission Date: 20230721
  Serious: Yes (Other)
  Sender: FDA-Public Use
  Company Number: US-GILEAD-2022-0563736

PATIENT
  Age: 53 Year
  Sex: Female
  Weight: 81.646 kg

DRUGS (17)
  1. ATRIPLA [Suspect]
     Active Substance: EFAVIRENZ\EMTRICITABINE\TENOFOVIR DISOPROXIL FUMARATE
     Indication: HIV infection
     Dosage: UNK
     Route: 048
     Dates: start: 2008
  2. ATRIPLA [Suspect]
     Active Substance: EFAVIRENZ\EMTRICITABINE\TENOFOVIR DISOPROXIL FUMARATE
     Dosage: UNK
     Route: 048
     Dates: start: 200812, end: 201505
  3. COMBIVIR [Concomitant]
     Active Substance: LAMIVUDINE\ZIDOVUDINE
  4. CRIXIVAN [Concomitant]
     Active Substance: INDINAVIR SULFATE
  5. EPIVIR [Concomitant]
     Active Substance: LAMIVUDINE
  6. INVIRASE [Concomitant]
     Active Substance: SAQUINAVIR MESYLATE
  7. SUSTIVA [Concomitant]
     Active Substance: EFAVIRENZ
  8. TRIUMEQ [Concomitant]
     Active Substance: ABACAVIR SULFATE\DOLUTEGRAVIR SODIUM\LAMIVUDINE
  9. ZERIT [Concomitant]
     Active Substance: STAVUDINE
  10. ZOLOFT [Concomitant]
     Active Substance: SERTRALINE HYDROCHLORIDE
  11. ACYCLOVIR [Concomitant]
     Active Substance: ACYCLOVIR
  12. ESCITALOPRAM [Concomitant]
     Active Substance: ESCITALOPRAM OXALATE
  13. METOPROLOL TARTRATE [Concomitant]
     Active Substance: METOPROLOL TARTRATE
  14. HYDROCHLOROTHIAZIDE [Concomitant]
     Active Substance: HYDROCHLOROTHIAZIDE
  15. PRAVASTATIN SODIUM [Concomitant]
     Active Substance: PRAVASTATIN SODIUM
  16. ALBUTEROL SULFATE [Concomitant]
     Active Substance: ALBUTEROL SULFATE
  17. ACYCLOVIR [Concomitant]
     Active Substance: ACYCLOVIR

REACTIONS (19)
  - Chronic kidney disease [Not Recovered/Not Resolved]
  - Osteoporosis [Not Recovered/Not Resolved]
  - Renal impairment [Not Recovered/Not Resolved]
  - Lower limb fracture [Not Recovered/Not Resolved]
  - Foot fracture [Unknown]
  - Wrist fracture [Not Recovered/Not Resolved]
  - Bone demineralisation [Unknown]
  - Emotional distress [Not Recovered/Not Resolved]
  - Anhedonia [Not Recovered/Not Resolved]
  - Anxiety [Not Recovered/Not Resolved]
  - Pain [Not Recovered/Not Resolved]
  - Osteopenia [Not Recovered/Not Resolved]
  - Depression [Unknown]
  - Foot fracture [Not Recovered/Not Resolved]
  - Foot fracture [Recovered/Resolved]
  - Foot fracture [Not Recovered/Not Resolved]
  - Gait disturbance [Unknown]
  - Feeding disorder [Unknown]
  - General physical health deterioration [Unknown]

NARRATIVE: CASE EVENT DATE: 20080101
